FAERS Safety Report 5306101-8 (Version None)
Quarter: 2007Q2

REPORT INFORMATION
  Report Type: 
  Country: None (occurrence: None)
  Receive Date: 20070424
  Receipt Date: 20061013
  Transmission Date: 20071010
  Serious: No
  Sender: FDA-Public Use
  Company Number: US-BRISTOL-MYERS SQUIBB COMPANY-13540893

PATIENT
  Sex: Female

DRUGS (2)
  1. PARAPLATIN [Suspect]
  2. TAXOL [Concomitant]

REACTIONS (1)
  - INJECTION SITE PAIN [None]
